FAERS Safety Report 9631418 (Version 1)
Quarter: 2013Q4

REPORT INFORMATION
  Report Type: Spontaneous
  Country: CN (occurrence: CN)
  Receive Date: 20131018
  Receipt Date: 20131018
  Transmission Date: 20140711
  Serious: Yes (Other)
  Sender: FDA-Public Use
  Company Number: CN-BAYER-2013-121857

PATIENT
  Age: 59 Year
  Sex: Male

DRUGS (1)
  1. GLUCOBAY [Suspect]
     Indication: BLOOD GLUCOSE INCREASED
     Dosage: 1 DF, TID
     Route: 048
     Dates: start: 20130928

REACTIONS (1)
  - Diabetes mellitus inadequate control [None]
